FAERS Safety Report 12653298 (Version 2)
Quarter: 2017Q2

REPORT INFORMATION
  Report Type: Report from Study
  Country: US (occurrence: US)
  Receive Date: 20160815
  Receipt Date: 20170424
  Transmission Date: 20170830
  Serious: Yes (Death, Hospitalization)
  Sender: FDA-Public Use
  Company Number: US-ACTELION-A-US2016-140510

PATIENT
  Age: 71 Year
  Sex: Female

DRUGS (11)
  1. XANAX [Concomitant]
     Active Substance: ALPRAZOLAM
  2. ZANTAC [Concomitant]
     Active Substance: RANITIDINE HYDROCHLORIDE
  3. BUMETANIDE. [Concomitant]
     Active Substance: BUMETANIDE
  4. MULTIVITAMIN [Concomitant]
     Active Substance: VITAMINS
  5. ADCIRCA [Concomitant]
     Active Substance: TADALAFIL
  6. WARFARIN [Concomitant]
     Active Substance: WARFARIN
  7. TRACLEER [Suspect]
     Active Substance: BOSENTAN
     Indication: PULMONARY ARTERIAL HYPERTENSION
     Dosage: 125 MG, BID
     Route: 048
     Dates: start: 20150707, end: 20170418
  8. BISOPRIL [Concomitant]
  9. BIOTIN [Concomitant]
     Active Substance: BIOTIN
  10. POTASSIUM [Concomitant]
     Active Substance: POTASSIUM
  11. SYNTHROID [Concomitant]
     Active Substance: LEVOTHYROXINE SODIUM

REACTIONS (2)
  - Death [Fatal]
  - Mitral valve repair [Recovered/Resolved]

NARRATIVE: CASE EVENT DATE: 20160720
